FAERS Safety Report 9296019 (Version 2)
Quarter: 2013Q2

REPORT INFORMATION
  Report Type: Spontaneous
  Country: JP (occurrence: JP)
  Receive Date: 20130517
  Receipt Date: 20130605
  Transmission Date: 20140414
  Serious: Yes (Death)
  Sender: FDA-Public Use
  Company Number: JP-PFIZER INC-2013149826

PATIENT
  Age: 95 Year
  Sex: Male

DRUGS (2)
  1. METHYLPREDNISOLONE [Suspect]
     Indication: ACUTE LUNG INJURY
     Dosage: 1000 MG, DAILY
  2. PREDNISOLONE [Concomitant]
     Indication: ACUTE LUNG INJURY
     Dosage: 60 MG, DAILY

REACTIONS (3)
  - Bronchopulmonary aspergillosis [Fatal]
  - Pneumocystis jirovecii pneumonia [Fatal]
  - Multi-organ failure [Fatal]
